FAERS Safety Report 23871171 (Version 4)
Quarter: 2024Q3

REPORT INFORMATION
  Report Type: Spontaneous
  Country: US (occurrence: US)
  Receive Date: 20240518
  Receipt Date: 20240725
  Transmission Date: 20241017
  Serious: No
  Sender: SANOFI AVENTIS
  Company Number: US-SA-SAC20240514000668

PATIENT
  Age: 73 Year
  Sex: Female

DRUGS (11)
  1. KEVZARA [Suspect]
     Active Substance: SARILUMAB
     Indication: Polymyalgia rheumatica
     Dosage: 200 MG, QOW
     Route: 058
     Dates: start: 20240430
  2. PREDNISONE [Concomitant]
     Active Substance: PREDNISONE
     Dosage: UNK
  3. AMBIEN [Concomitant]
     Active Substance: ZOLPIDEM TARTRATE
     Dosage: UNK
  4. LEVOTHYROXINE SODIUM [Concomitant]
     Active Substance: LEVOTHYROXINE SODIUM
     Dosage: UNK
  5. LEVOTHYROXINE SODIUM [Concomitant]
     Active Substance: LEVOTHYROXINE SODIUM
     Dosage: 75 MOO
  6. METRONIDAZOLE [Concomitant]
     Active Substance: METRONIDAZOLE
     Dosage: UNK
  7. IVERMECTIN [Concomitant]
     Active Substance: IVERMECTIN
     Dosage: UNK
  8. AZELAIC ACID [Interacting]
     Active Substance: AZELAIC ACID
     Dosage: UNK
  9. VITAMIN D3 [Concomitant]
     Active Substance: CHOLECALCIFEROL
     Dosage: UNK
  10. MAGNESIUM [Concomitant]
     Active Substance: MAGNESIUM
  11. MOTRIN [Concomitant]
     Active Substance: IBUPROFEN
     Dosage: UNK

REACTIONS (22)
  - Injection site pain [Not Recovered/Not Resolved]
  - Injection site bruising [Not Recovered/Not Resolved]
  - Pain [Not Recovered/Not Resolved]
  - Dizziness [Recovered/Resolved]
  - Joint swelling [Not Recovered/Not Resolved]
  - Dyspnoea [Unknown]
  - Rhinorrhoea [Unknown]
  - Cough [Unknown]
  - Respiratory tract congestion [Unknown]
  - Depression [Unknown]
  - Weight increased [Unknown]
  - Gait disturbance [Unknown]
  - Impaired quality of life [Unknown]
  - Feeling cold [Unknown]
  - Feeling hot [Unknown]
  - Abdominal discomfort [Unknown]
  - Sleep disorder due to a general medical condition [Unknown]
  - Myalgia [Unknown]
  - Mobility decreased [Unknown]
  - Condition aggravated [Unknown]
  - Fatigue [Unknown]
  - Drug ineffective [Unknown]

NARRATIVE: CASE EVENT DATE: 20240101
